FAERS Safety Report 22944795 (Version 3)
Quarter: 2023Q4

REPORT INFORMATION
  Report Type: Spontaneous
  Country: US (occurrence: US)
  Receive Date: 20230914
  Receipt Date: 20231026
  Transmission Date: 20240110
  Serious: Yes (Hospitalization, Other)
  Sender: FDA-Public Use
  Company Number: US-BRISTOL-MYERS SQUIBB COMPANY-2023-129571

PATIENT
  Age: 78 Year
  Sex: Female

DRUGS (2)
  1. POMALYST [Suspect]
     Active Substance: POMALIDOMIDE
     Indication: Plasma cell myeloma
     Dosage: TAKE 1 CAPSULE BY MOUTH EVERY DAY ON DAYS 1-14 WITH 14 DAYS OFF
     Route: 048
     Dates: start: 20221104
  2. POMALYST [Suspect]
     Active Substance: POMALIDOMIDE
     Dosage: TAKE 1 CAPSULE BY MOUTH EVERY DAY ON DAYS 1-14 WITH 14 DAYS OFF
     Route: 048
     Dates: start: 20221207

REACTIONS (4)
  - Gastrointestinal inflammation [Recovered/Resolved]
  - Colitis [Recovered/Resolved]
  - Off label use [Unknown]
  - Product supply issue [Unknown]

NARRATIVE: CASE EVENT DATE: 20230801
